FAERS Safety Report 4705196-X (Version None)
Quarter: 2005Q2

REPORT INFORMATION
  Report Type: 
  Country: None (occurrence: None)
  Receive Date: 20050628
  Receipt Date: 20050615
  Transmission Date: 20051028
  Serious: Yes (Other)
  Sender: FDA-Public Use
  Company Number: EWC050543920

PATIENT
  Age: 64 Year
  Sex: Male

DRUGS (7)
  1. XIGRIS [Suspect]
     Dosage: 24 YG/KG/HR
     Dates: start: 20050505
  2. NORADRENALINE [Concomitant]
  3. MEROPENEM [Concomitant]
  4. MIDAZOLAM HYDROCHLORIDE [Concomitant]
  5. VITAMIN K [Concomitant]
  6. METOCLOPRAMIDE [Concomitant]
  7. ALBUMIN (HUMAN) [Concomitant]

REACTIONS (1)
  - THROMBOCYTOPENIA [None]
